FAERS Safety Report 9194173 (Version 4)
Quarter: 2013Q3

REPORT INFORMATION
  Report Type: Spontaneous
  Country: BR (occurrence: BR)
  Receive Date: 20130327
  Receipt Date: 20130827
  Transmission Date: 20140515
  Serious: Yes (Other)
  Sender: FDA-Public Use
  Company Number: PHHY2013BR029452

PATIENT
  Age: 41 Year
  Sex: Male

DRUGS (5)
  1. TEGRETOL CR [Suspect]
     Dosage: 1 DF, DAILY
     Route: 048
  2. TEGRETOL CR [Suspect]
     Dosage: 2 DF, DAILY
     Route: 048
  3. TEGRETOL CR [Suspect]
     Dosage: 3 DF, DAILY
     Route: 048
  4. CARBAMAZEPINE [Suspect]
     Indication: VISUAL ACUITY REDUCED
     Dosage: 3.5 DF, DAILY
     Route: 048
  5. CARBAMAZEPINE [Suspect]
     Dosage: 3 DF, DAILY
     Route: 048
     Dates: start: 20130317

REACTIONS (13)
  - Convulsion [Recovered/Resolved]
  - Urinary incontinence [Recovered/Resolved]
  - Faecal incontinence [Recovered/Resolved]
  - Vomiting [Recovered/Resolved]
  - Diabetes mellitus [Unknown]
  - Gastrooesophageal reflux disease [Recovering/Resolving]
  - Insomnia [Recovering/Resolving]
  - Salivary hypersecretion [Recovering/Resolving]
  - Food craving [Recovering/Resolving]
  - Feeling of despair [Recovering/Resolving]
  - Dark circles under eyes [Not Recovered/Not Resolved]
  - Dyspnoea [Recovering/Resolving]
  - Malaise [Not Recovered/Not Resolved]
